FAERS Safety Report 5549305-1 (Version None)
Quarter: 2007Q4

REPORT INFORMATION
  Report Type: 
  Country: None (occurrence: None)
  Receive Date: 20071211
  Receipt Date: 20071130
  Transmission Date: 20080405
  Serious: Yes (Hospitalization)
  Sender: FDA-Public Use
  Company Number: JP-BRACCO-BEI-007777

PATIENT
  Age: 59 Year

DRUGS (3)
  1. PROHANCE [Suspect]
     Indication: CHOLESTEATOMA
     Route: 042
     Dates: start: 20071129, end: 20071129
  2. PROHANCE [Suspect]
     Route: 042
     Dates: start: 20071129, end: 20071129
  3. PROHANCE [Suspect]
     Indication: NUCLEAR MAGNETIC RESONANCE IMAGING BRAIN
     Route: 042
     Dates: start: 20071129, end: 20071129

REACTIONS (3)
  - ABDOMINAL PAIN UPPER [None]
  - RETROGRADE AMNESIA [None]
  - VOMITING [None]
